FAERS Safety Report 10332657 (Version 1)
Quarter: 2014Q3

REPORT INFORMATION
  Report Type: Spontaneous
  Country: US (occurrence: US)
  Receive Date: 20140722
  Receipt Date: 20140722
  Transmission Date: 20150326
  Serious: No
  Sender: FDA-Public Use
  Company Number: US-ASTRAZENECA-2013SE94022

PATIENT
  Age: 37 Year
  Sex: Male
  Weight: 113.4 kg

DRUGS (24)
  1. SEROQUEL [Suspect]
     Active Substance: QUETIAPINE FUMARATE
     Indication: BIPOLAR I DISORDER
     Route: 048
     Dates: start: 2004
  2. AMITRIPTYLINE [Suspect]
     Active Substance: AMITRIPTYLINE
     Indication: INSOMNIA
     Route: 065
  3. LEVITRA [Concomitant]
     Active Substance: VARDENAFIL HYDROCHLORIDE TRIHYDRATE
     Indication: ERECTILE DYSFUNCTION
     Dosage: GENERIC
     Route: 065
     Dates: start: 2004
  4. GABAPENTIN. [Concomitant]
     Active Substance: GABAPENTIN
  5. SEROQUEL [Suspect]
     Active Substance: QUETIAPINE FUMARATE
     Indication: BIPOLAR DISORDER
     Route: 048
     Dates: start: 2004
  6. SEROQUEL [Suspect]
     Active Substance: QUETIAPINE FUMARATE
     Indication: BIPOLAR I DISORDER
     Dosage: GENERIC
     Route: 048
     Dates: start: 200412
  7. SEROQUEL [Suspect]
     Active Substance: QUETIAPINE FUMARATE
     Indication: SCHIZOAFFECTIVE DISORDER
     Dosage: GENERIC
     Route: 048
     Dates: start: 200412
  8. PROLIXIN [Concomitant]
     Active Substance: FLUPHENAZINE HYDROCHLORIDE
  9. SEROQUEL [Suspect]
     Active Substance: QUETIAPINE FUMARATE
     Indication: SCHIZOAFFECTIVE DISORDER
     Route: 048
     Dates: start: 2004
  10. DEPAKOTE [Concomitant]
     Active Substance: DIVALPROEX SODIUM
     Indication: BIPOLAR DISORDER
  11. CIALIS [Concomitant]
     Active Substance: TADALAFIL
     Indication: ERECTILE DYSFUNCTION
     Dosage: GENERIC
     Route: 065
     Dates: start: 2004
  12. GEODON [Concomitant]
     Active Substance: ZIPRASIDONE HYDROCHLORIDE\ZIPRASIDONE MESYLATE
  13. SEROQUEL [Suspect]
     Active Substance: QUETIAPINE FUMARATE
     Indication: BIPOLAR DISORDER
     Dosage: GENERIC
     Route: 048
     Dates: start: 200412
  14. CLONAZEPAM. [Concomitant]
     Active Substance: CLONAZEPAM
  15. VIAGRA [Suspect]
     Active Substance: SILDENAFIL CITRATE
     Indication: ERECTILE DYSFUNCTION
     Dosage: GENERIC
     Route: 065
     Dates: start: 2004
  16. CIALIS [Concomitant]
     Active Substance: TADALAFIL
     Indication: ERECTILE DYSFUNCTION
     Dosage: GENERIC
     Route: 065
     Dates: start: 2004
  17. PROZAC [Concomitant]
     Active Substance: FLUOXETINE HYDROCHLORIDE
  18. RISPERDAL [Concomitant]
     Active Substance: RISPERIDONE
  19. ABILIFY [Concomitant]
     Active Substance: ARIPIPRAZOLE
  20. WELLBUTRIN [Concomitant]
     Active Substance: BUPROPION HYDROCHLORIDE
  21. LAMICTAL [Concomitant]
     Active Substance: LAMOTRIGINE
  22. LITHIUM [Concomitant]
     Active Substance: LITHIUM CARBONATE
     Indication: BIPOLAR DISORDER
  23. LEVITRA [Concomitant]
     Active Substance: VARDENAFIL HYDROCHLORIDE TRIHYDRATE
     Indication: ERECTILE DYSFUNCTION
     Dosage: GENERIC
     Route: 065
     Dates: start: 2004
  24. ZYPREXA [Concomitant]
     Active Substance: OLANZAPINE

REACTIONS (20)
  - Nervousness [Unknown]
  - Depression [Unknown]
  - Drug dependence [Unknown]
  - Papilloma viral infection [Unknown]
  - Penile ulceration [Unknown]
  - Anxiety [Unknown]
  - Chills [Unknown]
  - Erectile dysfunction [Unknown]
  - Deafness transitory [Recovered/Resolved]
  - Hypometabolism [Unknown]
  - Hepatitis C [Unknown]
  - Obesity [Unknown]
  - Weight increased [Unknown]
  - Hypertension [Unknown]
  - Vision blurred [Unknown]
  - Anogenital warts [Unknown]
  - Insomnia [Unknown]
  - Emotional distress [Unknown]
  - Liver injury [Unknown]
  - Headache [Unknown]

NARRATIVE: CASE EVENT DATE: 2011
